FAERS Safety Report 10091042 (Version 1)
Quarter: 2014Q2

REPORT INFORMATION
  Report Type: Spontaneous
  Country: US (occurrence: US)
  Receive Date: 20140421
  Receipt Date: 20140421
  Transmission Date: 20141212
  Serious: No
  Sender: FDA-Public Use
  Company Number: US-009507513-1404USA008717

PATIENT
  Age: 66 Year
  Sex: Female
  Weight: 70.3 kg

DRUGS (3)
  1. RIBAVIRIN (WARRICK) [Suspect]
     Indication: HEPATITIS C
     Dosage: UNK
     Route: 048
     Dates: start: 20130503, end: 20131115
  2. PEGINTRON [Suspect]
     Indication: HEPATITIS C
     Dosage: 0.5 CC ONCE A WEEK
     Route: 048
     Dates: start: 20130503, end: 20131115
  3. VICTRELIS [Suspect]
     Indication: HEPATITIS C
     Dosage: UNK, Q8H
     Route: 048
     Dates: start: 20130607, end: 20131115

REACTIONS (2)
  - Weight decreased [Recovering/Resolving]
  - Decreased appetite [Recovering/Resolving]
